FAERS Safety Report 25742468 (Version 2)
Quarter: 2025Q3

REPORT INFORMATION
  Report Type: Spontaneous
  Country: BR (occurrence: BR)
  Receive Date: 20250829
  Receipt Date: 20250905
  Transmission Date: 20251021
  Serious: Yes (Other)
  Sender: SANDOZ
  Company Number: BR-002147023-NVSC2025BR134994

PATIENT
  Age: 82 Year
  Sex: Female

DRUGS (4)
  1. FULVESTRANT [Suspect]
     Active Substance: FULVESTRANT
     Indication: Breast cancer
     Route: 065
     Dates: start: 202409
  2. RIBOCICLIB [Suspect]
     Active Substance: RIBOCICLIB
     Indication: Breast cancer
     Route: 065
  3. ZOLEDRONIC ACID [Suspect]
     Active Substance: ZOLEDRONIC ACID
     Indication: Breast cancer
     Route: 065
     Dates: start: 202409
  4. ANASTROZOLE [Concomitant]
     Active Substance: ANASTROZOLE
     Indication: Hormone therapy
     Route: 065

REACTIONS (18)
  - Arteriosclerosis coronary artery [Unknown]
  - Intraductal proliferative breast lesion [Unknown]
  - Metastases to liver [Unknown]
  - Hepatic mass [Unknown]
  - Eosinophil count decreased [Unknown]
  - Basophil count decreased [Unknown]
  - Tumour marker increased [Not Recovered/Not Resolved]
  - Red cell distribution width increased [Unknown]
  - Blood bilirubin decreased [Unknown]
  - Hepatic cyst [Unknown]
  - Cholelithiasis [Unknown]
  - Arteriosclerosis [Unknown]
  - Diverticulum [Unknown]
  - Osteolysis [Unknown]
  - Bone lesion [Unknown]
  - Spinal osteoarthritis [Unknown]
  - Blood alkaline phosphatase increased [Unknown]
  - Gamma-glutamyltransferase increased [Unknown]

NARRATIVE: CASE EVENT DATE: 20250423
